FAERS Safety Report 5586125-6 (Version None)
Quarter: 2007Q4

REPORT INFORMATION
  Report Type: 
  Country: None (occurrence: None)
  Receive Date: 20071205
  Receipt Date: 20070702
  Transmission Date: 20080405
  Serious: No
  Sender: FDA-Public Use
  Company Number: HQWYE910805JUL07

PATIENT
  Age: 59 Year
  Sex: Female
  Weight: 88.53 kg

DRUGS (1)
  1. EFFEXOR XR [Suspect]
     Indication: HOT FLUSH
     Dosage: 75 MG 1 X PER 1 TOT, ORAL
     Route: 048
     Dates: start: 20070629, end: 20070629

REACTIONS (6)
  - DIZZINESS [None]
  - HANGOVER [None]
  - HYPERHIDROSIS [None]
  - INSOMNIA [None]
  - NAUSEA [None]
  - SOMNOLENCE [None]
